FAERS Safety Report 10360662 (Version 2)
Quarter: 2014Q3

REPORT INFORMATION
  Report Type: Report from Study
  Country: JP (occurrence: JP)
  Receive Date: 20140804
  Receipt Date: 20140804
  Transmission Date: 20150326
  Serious: Yes (Life-Threatening)
  Sender: FDA-Public Use
  Company Number: JP-SA-THYM-1002711

PATIENT
  Age: 12 Year
  Sex: Male
  Weight: 38 kg

DRUGS (37)
  1. PENTAZOCINE HYDROCHLORIDE [Concomitant]
     Active Substance: PENTAZOCINE HYDROCHLORIDE
     Dosage: UNK
     Dates: start: 20110227, end: 20110329
  2. GEMTUZUMAB [Concomitant]
     Indication: ACUTE MYELOID LEUKAEMIA
     Dosage: UNK
     Dates: start: 20110429, end: 20110502
  3. ETOPOSIDE. [Concomitant]
     Active Substance: ETOPOSIDE
     Indication: ACUTE MYELOID LEUKAEMIA
     Dosage: UNK
     Dates: start: 20110517, end: 20110522
  4. NORFLOXACIN [Concomitant]
     Active Substance: NORFLOXACIN
     Indication: INFECTION PROPHYLAXIS
     Dosage: UNK
     Dates: start: 20110118, end: 20110302
  5. THYMOGLOBULINE [Suspect]
     Active Substance: LAPINE T-LYMPHOCYTE IMMUNE GLOBULIN
     Indication: BONE MARROW CONDITIONING REGIMEN
     Dosage: 95 MG, QD
     Route: 042
     Dates: start: 20110122, end: 20110125
  6. CEFOZOPRAN HYDROCHLORIDE [Concomitant]
     Active Substance: CEFOZOPRAN HYDROCHLORIDE
     Indication: INFECTION PROPHYLAXIS
     Dosage: UNK
     Dates: start: 20110117, end: 20110124
  7. FLOMOXEF SODIUM [Concomitant]
     Active Substance: FLOMOXEF SODIUM
     Indication: INFECTION PROPHYLAXIS
     Dosage: UNK
     Dates: start: 20110102, end: 20110116
  8. OCTREOTIDE ACETATE. [Concomitant]
     Active Substance: OCTREOTIDE ACETATE
     Indication: PROPHYLAXIS
     Dosage: UNK
     Dates: start: 20110203, end: 20110228
  9. METHYLPREDNISOLONE SODIUM SUCCINATE. [Concomitant]
     Active Substance: METHYLPREDNISOLONE SODIUM SUCCINATE
     Indication: ALLERGY PROPHYLAXIS
     Dosage: UNK
     Dates: start: 20110122, end: 20110124
  10. ELECTROLYTE SOLUTIONS [Concomitant]
     Active Substance: UNSPECIFIED INGREDIENT
     Indication: NUTRITIONAL SUPPLEMENTATION
     Dosage: UNK
     Dates: start: 20110202, end: 20110407
  11. ACICLOVIR [Concomitant]
     Active Substance: ACYCLOVIR
     Indication: ANTIVIRAL PROPHYLAXIS
     Dosage: UNK
     Dates: start: 20110118, end: 20110302
  12. SULFAMETHOXAZOLE/TRIMETHOPRIM [Concomitant]
     Active Substance: SULFAMETHOXAZOLE\TRIMETHOPRIM
     Indication: ANTIVIRAL PROPHYLAXIS
     Dosage: UNK
     Dates: start: 20110118, end: 20110821
  13. ETOPOSIDE. [Concomitant]
     Active Substance: ETOPOSIDE
     Indication: ACUTE MYELOID LEUKAEMIA
     Dosage: UNK
     Dates: start: 20110525, end: 20110715
  14. GRANISETRON HYDROCHLORIDE. [Concomitant]
     Active Substance: GRANISETRON HYDROCHLORIDE
     Indication: PROPHYLAXIS
     Dosage: UNK
     Dates: start: 20110118, end: 20110126
  15. FLUDARABINE PHOSPHATE. [Concomitant]
     Active Substance: FLUDARABINE PHOSPHATE
     Indication: BONE MARROW CONDITIONING REGIMEN
     Dosage: UNK
     Dates: start: 20110119, end: 20110122
  16. CYCLOPHOSPHAMIDE. [Concomitant]
     Active Substance: CYCLOPHOSPHAMIDE
     Indication: BONE MARROW CONDITIONING REGIMEN
     Dosage: UNK
     Dates: start: 20110123, end: 20110124
  17. FAMOTIDINE. [Concomitant]
     Active Substance: FAMOTIDINE
     Indication: HAEMORRHAGE PROPHYLAXIS
     Dosage: UNK
     Dates: start: 20110116, end: 20110503
  18. HYDROXYZINE [Concomitant]
     Active Substance: HYDROXYZINE\HYDROXYZINE HYDROCHLORIDE
     Indication: ALLERGY PROPHYLAXIS
     Dosage: UNK
     Dates: start: 20110127, end: 20110127
  19. MINOCYCLINE HYDROCHLORIDE. [Concomitant]
     Active Substance: MINOCYCLINE HYDROCHLORIDE
     Indication: INFECTION PROPHYLAXIS
     Dosage: UNK
     Dates: start: 20110620, end: 20110620
  20. NEXAVAR [Concomitant]
     Active Substance: SORAFENIB
     Indication: ACUTE MYELOID LEUKAEMIA
     Dosage: UNK
     Dates: start: 20110711, end: 20110821
  21. CHLORPHENAMINE MALEATE [Concomitant]
     Active Substance: CHLORPHENIRAMINE MALEATE
     Indication: ALLERGY PROPHYLAXIS
     Dosage: UNK
     Dates: start: 20110122, end: 20110124
  22. MESNA. [Concomitant]
     Active Substance: MESNA
     Indication: HAEMORRHAGE PROPHYLAXIS
     Dosage: UNK
     Dates: start: 20110123, end: 20110124
  23. TACROLIMUS. [Concomitant]
     Active Substance: TACROLIMUS
     Indication: PROPHYLAXIS AGAINST GRAFT VERSUS HOST DISEASE
     Dosage: UNK
     Dates: start: 20110126, end: 20110305
  24. MICAFUNGIN SODIUM [Concomitant]
     Active Substance: MICAFUNGIN SODIUM
     Indication: ANTIFUNGAL PROPHYLAXIS
     Dosage: UNK
     Dates: start: 20110117, end: 20110821
  25. CYTARABINE. [Concomitant]
     Active Substance: CYTARABINE
     Indication: ACUTE MYELOID LEUKAEMIA
     Dosage: UNK
     Dates: start: 20110509, end: 20110714
  26. IMMUNOGLOBULIN [Concomitant]
     Active Substance: HUMAN IMMUNOGLOBULIN G
     Indication: INFECTION PROPHYLAXIS
     Dosage: UNK
     Dates: start: 20110118, end: 20110816
  27. FRUCTOSE/GLYCEROL [Concomitant]
     Indication: BRAIN OEDEMA
     Dosage: UNK
     Dates: start: 20110125, end: 20110127
  28. METHOTREXATE [Concomitant]
     Active Substance: METHOTREXATE
     Indication: PROPHYLAXIS AGAINST GRAFT VERSUS HOST DISEASE
     Dosage: UNK
     Dates: start: 20110128, end: 20110207
  29. TEICOPLANIN [Concomitant]
     Active Substance: TEICOPLANIN
     Indication: INFECTION PROPHYLAXIS
     Dosage: UNK
     Dates: start: 20110623, end: 20110821
  30. ANTIBIOTICS-RESISTANT LACTIC ACID BACTERIAE [Concomitant]
     Active Substance: UNSPECIFIED INGREDIENT
     Indication: DIARRHOEA
     Dosage: UNK
     Dates: start: 20110124, end: 20110130
  31. MEROPENEM. [Concomitant]
     Active Substance: MEROPENEM
     Indication: INFECTION PROPHYLAXIS
     Dosage: UNK
     Dates: start: 20110124, end: 20110128
  32. METOCLOPRAMIDE. [Concomitant]
     Active Substance: METOCLOPRAMIDE
     Indication: PROPHYLAXIS OF NAUSEA AND VOMITING
     Dosage: UNK
     Dates: start: 20110131, end: 20110215
  33. VORICONAZOLE. [Concomitant]
     Active Substance: VORICONAZOLE
     Indication: ANTIFUNGAL PROPHYLAXIS
     Dosage: UNK
     Dates: start: 20110620, end: 20110712
  34. MITOXANTRONE HYDROCHLORIDE. [Concomitant]
     Active Substance: MITOXANTRONE HYDROCHLORIDE
     Indication: ACUTE MYELOID LEUKAEMIA
     Dosage: UNK
     Dates: start: 20110805, end: 20110807
  35. URSODEOXYCHOLIC ACID [Concomitant]
     Active Substance: URSODIOL
     Indication: PROPHYLAXIS
     Dosage: UNK
     Dates: start: 20110118, end: 20110302
  36. THYMOGLOBULINE [Suspect]
     Active Substance: LAPINE T-LYMPHOCYTE IMMUNE GLOBULIN
     Indication: BONE MARROW CONDITIONING REGIMEN
     Dosage: 95 MG, QD
     Route: 042
     Dates: start: 20110122, end: 20110125
  37. DANAPAROID SODIUM [Concomitant]
     Active Substance: DANAPAROID SODIUM
     Indication: PROPHYLAXIS
     Dosage: UNK
     Dates: start: 20110119, end: 20110226

REACTIONS (2)
  - Epstein-Barr virus associated lymphoproliferative disorder [Recovered/Resolved]
  - Staphylococcal sepsis [Recovered/Resolved]

NARRATIVE: CASE EVENT DATE: 20110319
